FAERS Safety Report 9486449 (Version 12)
Quarter: 2017Q3

REPORT INFORMATION
  Report Type: Report from Study
  Country: US (occurrence: US)
  Receive Date: 20130829
  Receipt Date: 20170817
  Transmission Date: 20171128
  Serious: Yes (Other)
  Sender: FDA-Public Use
  Company Number: US-SANOFI-AVENTIS-2013SA081472

PATIENT
  Age: 58 Year
  Sex: Female

DRUGS (23)
  1. AUBAGIO [Suspect]
     Active Substance: TERIFLUNOMIDE
     Indication: MULTIPLE SCLEROSIS
     Route: 048
     Dates: start: 20151118
  2. ZOLPIDEM [Concomitant]
     Active Substance: ZOLPIDEM\ZOLPIDEM TARTRATE
     Indication: SLEEP DISORDER
     Dosage: FREQUENCY - QHS?SOMETIMES SHE BREAKS THEM IN HALF AND ONLY TAKES ONE HALF TABLETS QHS.
     Route: 065
  3. OXYCODONE [Concomitant]
     Active Substance: OXYCODONE
  4. TIZANIDINE. [Concomitant]
     Active Substance: TIZANIDINE
  5. AUBAGIO [Suspect]
     Active Substance: TERIFLUNOMIDE
     Indication: MULTIPLE SCLEROSIS
     Route: 048
     Dates: start: 2014
  6. LISINOPRIL AND HYDROCHLOROTHIAZIDE [Suspect]
     Active Substance: HYDROCHLOROTHIAZIDE\LISINOPRIL
     Indication: BLOOD PRESSURE MEASUREMENT
     Dosage: 20-12
     Route: 065
  7. BUSPIRONE HYDROCHLORIDE. [Concomitant]
     Active Substance: BUSPIRONE HYDROCHLORIDE
  8. ATENOLOL. [Concomitant]
     Active Substance: ATENOLOL
     Indication: BLOOD PRESSURE MEASUREMENT
     Route: 065
  9. AMLODIPINE [Concomitant]
     Active Substance: AMLODIPINE BESYLATE
  10. CETIRIZINE [Concomitant]
     Active Substance: CETIRIZINE HYDROCHLORIDE
  11. NEXIUM [Concomitant]
     Active Substance: ESOMEPRAZOLE MAGNESIUM
  12. AMOXICILLIN. [Concomitant]
     Active Substance: AMOXICILLIN
     Dosage: 500 MG
     Route: 065
  13. FENOFIBRIC ACID. [Concomitant]
     Active Substance: FENOFIBRIC ACID
     Dosage: 135 MG
     Route: 065
  14. SINGULAIR [Concomitant]
     Active Substance: MONTELUKAST SODIUM
  15. AUBAGIO [Suspect]
     Active Substance: TERIFLUNOMIDE
     Indication: MULTIPLE SCLEROSIS
     Route: 048
  16. VITAMIN D3 [Concomitant]
     Active Substance: CHOLECALCIFEROL
  17. ACTONEL [Concomitant]
     Active Substance: RISEDRONATE SODIUM
  18. AUBAGIO [Suspect]
     Active Substance: TERIFLUNOMIDE
     Indication: MULTIPLE SCLEROSIS
     Route: 048
     Dates: start: 20130726
  19. ALPRAZOLAM. [Concomitant]
     Active Substance: ALPRAZOLAM
     Dosage: 20 MINUTES BEFORE SHE TAKES HER AUBAGIO
     Route: 065
  20. MUCINEX [Concomitant]
     Active Substance: GUAIFENESIN
  21. DULOXETINE HYDROCHLORIDE. [Concomitant]
     Active Substance: DULOXETINE HYDROCHLORIDE
  22. CARAFATE [Concomitant]
     Active Substance: SUCRALFATE
  23. ALIGN [Concomitant]
     Active Substance: BIFIDOBACTERIUM LONGUM SUBSP. INFANTIS

REACTIONS (42)
  - Intestinal obstruction [Unknown]
  - Burning sensation [Unknown]
  - Dry skin [Unknown]
  - Diabetes mellitus [Not Recovered/Not Resolved]
  - Swollen tongue [Unknown]
  - Multiple sclerosis [Unknown]
  - Fall [Unknown]
  - Chills [Unknown]
  - Irritability [Unknown]
  - Floating patella [Unknown]
  - Dyskinesia [Unknown]
  - Diarrhoea [Not Recovered/Not Resolved]
  - Osteomyelitis [Not Recovered/Not Resolved]
  - Bedridden [Unknown]
  - Anxiety [Not Recovered/Not Resolved]
  - White blood cell count increased [Unknown]
  - Swelling [Unknown]
  - Infection [Unknown]
  - Hyperhidrosis [Not Recovered/Not Resolved]
  - Cataract [Unknown]
  - Drug dose omission [Unknown]
  - Cough [Unknown]
  - Ear disorder [Unknown]
  - Fungal infection [Not Recovered/Not Resolved]
  - Sepsis [Unknown]
  - Burning sensation [Recovering/Resolving]
  - Diplopia [Not Recovered/Not Resolved]
  - Haematoma [Unknown]
  - Asthenia [Unknown]
  - Confusional state [Not Recovered/Not Resolved]
  - Skin ulcer [Recovering/Resolving]
  - Tremor [Unknown]
  - Tremor [Unknown]
  - Weight decreased [Unknown]
  - Impaired driving ability [Not Recovered/Not Resolved]
  - Nervousness [Not Recovered/Not Resolved]
  - Dandruff [Unknown]
  - Optic nerve injury [Unknown]
  - Knee arthroplasty [Unknown]
  - Hot flush [Not Recovered/Not Resolved]
  - Poor quality sleep [Unknown]
  - Overweight [Not Recovered/Not Resolved]

NARRATIVE: CASE EVENT DATE: 2013
